FAERS Safety Report 16309762 (Version 1)
Quarter: 2019Q2

REPORT INFORMATION
  Report Type: Spontaneous
  Country: DE (occurrence: DE)
  Receive Date: 20190514
  Receipt Date: 20190514
  Transmission Date: 20190711
  Serious: Yes (Hospitalization)
  Sender: FDA-Public Use
  Company Number: DE-ASTRAZENECA-2019SE70417

PATIENT
  Age: 54 Year
  Sex: Female

DRUGS (1)
  1. OMEPRAZOL [Suspect]
     Active Substance: OMEPRAZOLE
     Indication: GASTROOESOPHAGEAL REFLUX DISEASE
     Route: 048
     Dates: start: 2014

REACTIONS (5)
  - Vomiting [Unknown]
  - Abdominal pain [Unknown]
  - Hot flush [Unknown]
  - Hypotension [Unknown]
  - Diarrhoea [Unknown]
